FAERS Safety Report 5448683-1 (Version None)
Quarter: 2007Q3

REPORT INFORMATION
  Report Type: 
  Country: None (occurrence: None)
  Receive Date: 20070911
  Receipt Date: 20070906
  Transmission Date: 20080115
  Serious: Yes (Hospitalization, Congenital Anomaly)
  Sender: FDA-Public Use
  Company Number: A0661737A

PATIENT

DRUGS (1)
  1. PAXIL [Suspect]
     Indication: DRUG USE FOR UNKNOWN INDICATION
     Dosage: 12.5MG TWICE PER DAY

REACTIONS (12)
  - CONGENITAL ANOMALY [None]
  - CYANOSIS [None]
  - DRUG EXPOSURE DURING PREGNANCY [None]
  - FATIGUE [None]
  - GASTROOESOPHAGEAL REFLUX DISEASE [None]
  - HEART DISEASE CONGENITAL [None]
  - HEART VALVE INCOMPETENCE [None]
  - HYPERTENSION [None]
  - NECK INJURY [None]
  - RESPIRATORY DEPTH INCREASED [None]
  - TOOTH INJURY [None]
  - TRANSPOSITION OF THE GREAT VESSELS [None]
